FAERS Safety Report 10949288 (Version 1)
Quarter: 2015Q1

REPORT INFORMATION
  Report Type: Spontaneous
  Country: AU (occurrence: None)
  Receive Date: 20150320
  Receipt Date: 20150320
  Transmission Date: 20150721
  Serious: Yes (Other)
  Sender: FDA-Public Use
  Company Number: AU2015GSK035706

PATIENT
  Age: 40 Year
  Sex: Male

DRUGS (4)
  1. LOPINAVIR AND RITONAVIR [Suspect]
     Active Substance: LOPINAVIR\RITONAVIR
     Indication: HIV INFECTION
  2. STAVUDINE (STAVUDINE) [Suspect]
     Active Substance: STAVUDINE
     Indication: HIV INFECTION
  3. FLUTICASONE PROPIONATE (FLUTICASONE PROPIONATE) (FLUTICASONE PROPIONATE) [Suspect]
     Active Substance: FLUTICASONE PROPIONATE
     Indication: ASTHMA
     Dosage: 250 UG, BID IN THE PRECEDING 5 MONTHS, INHALED
  4. ABACAVIR (ABACAVIR SULPHATE) UNKNOWN [Suspect]
     Active Substance: ABACAVIR
     Indication: HIV INFECTION

REACTIONS (11)
  - Cushingoid [None]
  - Osteonecrosis [None]
  - Drug interaction [None]
  - Joint range of motion decreased [None]
  - Osteopenia [None]
  - Adrenal suppression [None]
  - Oedema [None]
  - Muscle atrophy [None]
  - Joint effusion [None]
  - Joint swelling [None]
  - Arthralgia [None]
